FAERS Safety Report 7700395-7 (Version None)
Quarter: 2011Q3

REPORT INFORMATION
  Report Type: 
  Country: None (occurrence: None)
  Receive Date: 20110816
  Receipt Date: 20110804
  Transmission Date: 20111222
  Serious: Yes (Disabling, Other)
  Sender: FDA-Public Use
  Company Number: 2011P1007989

PATIENT
  Age: 58 Year
  Sex: Female
  Weight: 104.3273 kg

DRUGS (15)
  1. TEGRETOL [Suspect]
     Indication: MIGRAINE
     Dosage: 100 MG;QD
     Dates: start: 20110614, end: 20110601
  2. ADVAIR (FLUTICASONE AND SLAMETEROL) [Concomitant]
  3. LOVAZA [Concomitant]
  4. TOPAMAX [Concomitant]
  5. GABAPENTIN [Concomitant]
  6. LEXAPRO [Concomitant]
  7. TRAZODONE HYDROCHLORIDE [Concomitant]
  8. OXYCODONE/ACETAMINOPHEN [Concomitant]
  9. MOBIC [Concomitant]
  10. IMURAN [Concomitant]
  11. ROPINIROLE [Suspect]
     Indication: RESTLESS LEGS SYNDROME
     Dosage: 1 TAB;QD;PO
     Route: 048
     Dates: start: 20090101
  12. NORVASC [Concomitant]
  13. PLAQUENIL [Concomitant]
  14. ATIVAN [Concomitant]
  15. ROBAXIN [Concomitant]

REACTIONS (12)
  - DIARRHOEA [None]
  - CONDITION AGGRAVATED [None]
  - DYSPEPSIA [None]
  - MIGRAINE [None]
  - WEIGHT INCREASED [None]
  - MUSCLE TWITCHING [None]
  - DRUG INEFFECTIVE [None]
  - NAUSEA [None]
  - CONVULSION [None]
  - VOMITING [None]
  - MOBILITY DECREASED [None]
  - HUNGER [None]
